FAERS Safety Report 19358126 (Version 1)
Quarter: 2021Q2

REPORT INFORMATION
  Report Type: Report from Study
  Country: DE (occurrence: DE)
  Receive Date: 20210601
  Receipt Date: 20210601
  Transmission Date: 20210717
  Serious: Yes (Hospitalization, Other)
  Sender: FDA-Public Use
  Company Number: DE-SUN PHARMACEUTICAL INDUSTRIES LTD-2020RR-257494

PATIENT
  Age: 92 Year
  Sex: Male
  Weight: 46 kg

DRUGS (8)
  1. SONIDEGIB [Suspect]
     Active Substance: SONIDEGIB
     Indication: BASAL CELL CARCINOMA
     Dosage: 200 MILLIGRAM, DAILY
     Route: 048
     Dates: start: 20200403, end: 20200726
  2. BISOPROLOL [Concomitant]
     Active Substance: BISOPROLOL
     Indication: PRE-EXISTING DISEASE
     Dosage: 5 MILLIGRAM, DAILY
     Route: 048
  3. MARCUMAR [Concomitant]
     Active Substance: PHENPROCOUMON
     Indication: PRE-EXISTING DISEASE
     Dosage: 3 MILLIGRAM, DAILY
     Route: 048
  4. AMLODIPIN [Concomitant]
     Active Substance: AMLODIPINE BESYLATE
     Indication: PRE-EXISTING DISEASE
     Dosage: 5 MILLIGRAM, DAILY
     Route: 048
  5. ENTRESTO [Concomitant]
     Active Substance: SACUBITRIL\VALSARTAN
     Indication: PRE-EXISTING DISEASE
     Dosage: 49 MILLIGRAM, BID
     Route: 048
  6. ACETYLSALIZYL SAURE [Concomitant]
     Indication: PRE-EXISTING DISEASE
     Dosage: 100 MILLIGRAM, DAILY
     Route: 048
  7. INSPRA [Concomitant]
     Active Substance: EPLERENONE
     Indication: PRE-EXISTING DISEASE
     Dosage: 25 MILLIGRAM, DAILY
     Route: 048
  8. TORASEMID [Concomitant]
     Active Substance: TORSEMIDE
     Indication: PRE-EXISTING DISEASE
     Dosage: 10 MILLIGRAM, TID
     Route: 048

REACTIONS (4)
  - Muscle spasms [Unknown]
  - Blood creatine phosphokinase increased [Unknown]
  - Hyperkalaemia [Recovered/Resolved]
  - Angina pectoris [Recovered/Resolved]

NARRATIVE: CASE EVENT DATE: 20200727
